FAERS Safety Report 4661527-0 (Version None)
Quarter: 2005Q2

REPORT INFORMATION
  Report Type: 
  Country: None (occurrence: None)
  Receive Date: 20050502
  Receipt Date: 20050106
  Transmission Date: 20051028
  Serious: Yes (Other)
  Sender: FDA-Public Use
  Company Number: 200510127US

PATIENT
  Age: 31 Year
  Sex: Male

DRUGS (1)
  1. KETEK [Suspect]

REACTIONS (1)
  - LOSS OF CONSCIOUSNESS [None]
